FAERS Safety Report 15577741 (Version 1)
Quarter: 2018Q4

REPORT INFORMATION
  Report Type: Report from Study
  Country: US (occurrence: US)
  Receive Date: 20181102
  Receipt Date: 20181102
  Transmission Date: 20190205
  Serious: Yes (Other)
  Sender: FDA-Public Use
  Company Number: US-ROCHE-2205724

PATIENT

DRUGS (6)
  1. E75 [Suspect]
     Active Substance: NELIPEPIMUT-S
     Indication: BREAST CANCER
     Dosage: 30-120 MINUTES AFTER COMPLETION OF TRASTUZUMAB INFUSION, FOR 6 VACCINATION?STRENGTH: 1.5 MG/ML
     Route: 023
  2. SARGRAMOSTIM [Suspect]
     Active Substance: SARGRAMOSTIM
     Indication: BREAST CANCER
     Dosage: 30-120 MINUTES AFTER COMPLETION OF TRASTUZUMAB, FOR 6 TOTAL INOCULATIONS
     Route: 023
  3. TRASTUZUMAB. [Suspect]
     Active Substance: TRASTUZUMAB
     Indication: BREAST CANCER
     Dosage: LOADING DOSE
     Route: 042
     Dates: start: 20161115, end: 20161115
  4. AROMASIN [Concomitant]
     Active Substance: EXEMESTANE
  5. CORTISONE [Concomitant]
     Active Substance: CORTISONE\HYDROCORTISONE
     Route: 065
  6. TRASTUZUMAB. [Suspect]
     Active Substance: TRASTUZUMAB
     Dosage: MAINTENANCE DOSES
     Route: 042
     Dates: start: 20161115

REACTIONS (1)
  - Rectal haemorrhage [Recovered/Resolved]

NARRATIVE: CASE EVENT DATE: 20170420
